FAERS Safety Report 19947306 (Version 1)
Quarter: 2021Q4

REPORT INFORMATION
  Report Type: Spontaneous
  Country: US (occurrence: US)
  Receive Date: 20211012
  Receipt Date: 20211012
  Transmission Date: 20220303
  Serious: Yes (Other)
  Sender: FDA-Public Use
  Company Number: US-PURDUE-USA-2021-0286001

PATIENT
  Age: 75 Year
  Sex: Female

DRUGS (3)
  1. COLACE [Suspect]
     Active Substance: DOCUSATE SODIUM
     Indication: Constipation
     Dosage: 7 CAPSL, DAILY
     Route: 048
     Dates: start: 20211001
  2. COLACE [Suspect]
     Active Substance: DOCUSATE SODIUM
     Dosage: 2 CAPSL, DAILY
     Route: 048
     Dates: start: 20211002, end: 20211004
  3. ACETAMINOPHEN\HYDROCODONE BITARTRATE [Concomitant]
     Active Substance: ACETAMINOPHEN\HYDROCODONE BITARTRATE
     Indication: Pain
     Dosage: 10/325 MG, UNK
     Route: 048
     Dates: start: 20210927

REACTIONS (3)
  - Overdose [Not Recovered/Not Resolved]
  - Electrolyte depletion [Not Recovered/Not Resolved]
  - Diarrhoea [Recovered/Resolved]

NARRATIVE: CASE EVENT DATE: 20211001
